FAERS Safety Report 9034700 (Version 2)
Quarter: 2014Q1

REPORT INFORMATION
  Report Type: Spontaneous
  Country: JP (occurrence: None)
  Receive Date: 20130118
  Receipt Date: 20140218
  Transmission Date: 20141002
  Serious: Yes (Death, Other)
  Sender: FDA-Public Use
  Company Number: ADR-2013-00068

PATIENT
  Age: 68 Year
  Sex: Male

DRUGS (1)
  1. GABALON [Suspect]

REACTIONS (3)
  - Decreased appetite [None]
  - Gastric cancer [None]
  - Neoplasm progression [None]
